FAERS Safety Report 15659922 (Version 2)
Quarter: 2018Q4

REPORT INFORMATION
  Report Type: Spontaneous
  Country: CN (occurrence: CN)
  Receive Date: 20181127
  Receipt Date: 20181129
  Transmission Date: 20190205
  Serious: Yes (Other)
  Sender: FDA-Public Use
  Company Number: CN-ROCHE-2219655

PATIENT
  Age: 41 Year
  Sex: Female
  Weight: 60 kg

DRUGS (39)
  1. VINORELBINE [Concomitant]
     Active Substance: VINORELBINE\VINORELBINE TARTRATE
     Indication: INVASIVE DUCTAL BREAST CARCINOMA
     Route: 065
     Dates: start: 20151124, end: 20151207
  2. HERCEPTIN [Suspect]
     Active Substance: TRASTUZUMAB
     Route: 065
     Dates: start: 20160819, end: 20161104
  3. PACLITAXEL. [Concomitant]
     Active Substance: PACLITAXEL
     Indication: INVASIVE DUCTAL BREAST CARCINOMA
     Route: 065
     Dates: start: 20150414, end: 20150623
  4. VINORELBINE [Concomitant]
     Active Substance: VINORELBINE\VINORELBINE TARTRATE
     Route: 065
     Dates: start: 20160215, end: 20160228
  5. CAPECITABINE. [Concomitant]
     Active Substance: CAPECITABINE
     Route: 065
     Dates: start: 20160215, end: 20160228
  6. ETOPOSIDE. [Concomitant]
     Active Substance: ETOPOSIDE
     Indication: INVASIVE DUCTAL BREAST CARCINOMA
     Route: 065
     Dates: start: 20170512
  7. HERCEPTIN [Suspect]
     Active Substance: TRASTUZUMAB
     Indication: INVASIVE DUCTAL BREAST CARCINOMA
     Route: 065
     Dates: start: 20150716
  8. HERCEPTIN [Suspect]
     Active Substance: TRASTUZUMAB
     Route: 065
     Dates: start: 20151219, end: 20160101
  9. HERCEPTIN [Suspect]
     Active Substance: TRASTUZUMAB
     Route: 065
     Dates: start: 20160215, end: 20160228
  10. CYCLOPHOSPHAMIDE. [Concomitant]
     Active Substance: CYCLOPHOSPHAMIDE
     Indication: INVASIVE DUCTAL BREAST CARCINOMA
     Route: 065
     Dates: start: 20150109, end: 20150319
  11. CAPECITABINE. [Concomitant]
     Active Substance: CAPECITABINE
     Route: 065
     Dates: start: 20160113, end: 20160126
  12. CAPECITABINE. [Concomitant]
     Active Substance: CAPECITABINE
     Route: 065
     Dates: start: 20160611, end: 20160715
  13. ETOPOSIDE. [Concomitant]
     Active Substance: ETOPOSIDE
     Route: 065
     Dates: start: 20170516, end: 201709
  14. HERCEPTIN [Suspect]
     Active Substance: TRASTUZUMAB
     Route: 065
     Dates: start: 20151124, end: 20151207
  15. HERCEPTIN [Suspect]
     Active Substance: TRASTUZUMAB
     Route: 065
     Dates: start: 20160310, end: 20160323
  16. HERCEPTIN [Suspect]
     Active Substance: TRASTUZUMAB
     Route: 065
     Dates: start: 20160403, end: 20160413
  17. HERCEPTIN [Suspect]
     Active Substance: TRASTUZUMAB
     Route: 065
     Dates: start: 201612, end: 201703
  18. VINORELBINE [Concomitant]
     Active Substance: VINORELBINE\VINORELBINE TARTRATE
     Route: 065
     Dates: start: 20151219, end: 20160101
  19. HERCEPTIN [Suspect]
     Active Substance: TRASTUZUMAB
     Route: 065
     Dates: start: 20180124
  20. GEMCITABINE [Concomitant]
     Active Substance: GEMCITABINE\GEMCITABINE HYDROCHLORIDE
     Indication: INVASIVE DUCTAL BREAST CARCINOMA
     Route: 065
     Dates: start: 20150811, end: 20151103
  21. VINORELBINE [Concomitant]
     Active Substance: VINORELBINE\VINORELBINE TARTRATE
     Route: 065
     Dates: start: 20160403, end: 20160413
  22. CAPECITABINE. [Concomitant]
     Active Substance: CAPECITABINE
     Indication: INVASIVE DUCTAL BREAST CARCINOMA
     Route: 065
     Dates: start: 20151124, end: 20151207
  23. HERCEPTIN [Suspect]
     Active Substance: TRASTUZUMAB
     Indication: INVASIVE DUCTAL BREAST CARCINOMA
     Route: 041
     Dates: start: 20150414, end: 20150623
  24. HERCEPTIN [Suspect]
     Active Substance: TRASTUZUMAB
     Route: 065
     Dates: start: 201807
  25. VINORELBINE [Concomitant]
     Active Substance: VINORELBINE\VINORELBINE TARTRATE
     Route: 065
     Dates: start: 20170916, end: 20180111
  26. VINORELBINE [Concomitant]
     Active Substance: VINORELBINE\VINORELBINE TARTRATE
     Route: 065
     Dates: start: 201805, end: 201807
  27. CAPECITABINE. [Concomitant]
     Active Substance: CAPECITABINE
     Route: 065
     Dates: start: 20160403, end: 20160413
  28. LAPATINIB [Concomitant]
     Active Substance: LAPATINIB
     Indication: INVASIVE DUCTAL BREAST CARCINOMA
     Route: 065
     Dates: start: 201612, end: 201705
  29. HERCEPTIN [Suspect]
     Active Substance: TRASTUZUMAB
     Route: 065
     Dates: start: 20150811, end: 20151103
  30. HERCEPTIN [Suspect]
     Active Substance: TRASTUZUMAB
     Route: 065
     Dates: start: 20160113, end: 20160126
  31. VINORELBINE [Concomitant]
     Active Substance: VINORELBINE\VINORELBINE TARTRATE
     Route: 065
     Dates: start: 20160310, end: 20160323
  32. CAPECITABINE. [Concomitant]
     Active Substance: CAPECITABINE
     Route: 065
     Dates: start: 20151219, end: 20160101
  33. DOCETAXEL. [Concomitant]
     Active Substance: DOCETAXEL
     Indication: INVASIVE DUCTAL BREAST CARCINOMA
     Route: 041
     Dates: start: 20160915, end: 20161104
  34. HERCEPTIN [Suspect]
     Active Substance: TRASTUZUMAB
     Route: 065
     Dates: start: 20170916, end: 20180111
  35. HERCEPTIN [Suspect]
     Active Substance: TRASTUZUMAB
     Route: 065
     Dates: start: 201805
  36. CARBOPLATIN. [Suspect]
     Active Substance: CARBOPLATIN
     Indication: INVASIVE DUCTAL BREAST CARCINOMA
     Route: 041
     Dates: start: 20160819, end: 20161104
  37. EPIRUBICIN HYDROCHLORIDE. [Concomitant]
     Active Substance: EPIRUBICIN HYDROCHLORIDE
     Indication: INVASIVE DUCTAL BREAST CARCINOMA
     Route: 065
     Dates: start: 20150109, end: 20150319
  38. VINORELBINE [Concomitant]
     Active Substance: VINORELBINE\VINORELBINE TARTRATE
     Route: 065
     Dates: start: 20160113, end: 20160126
  39. CAPECITABINE. [Concomitant]
     Active Substance: CAPECITABINE
     Route: 065
     Dates: start: 20160310, end: 20160323

REACTIONS (7)
  - Erythema [Unknown]
  - Arthralgia [Unknown]
  - Hepatic steatosis [Unknown]
  - Pneumonitis [Unknown]
  - Bone marrow failure [Recovering/Resolving]
  - Hepatic cyst [Unknown]
  - Peripheral swelling [Unknown]

NARRATIVE: CASE EVENT DATE: 20160915
